FAERS Safety Report 16013795 (Version 2)
Quarter: 2019Q1

REPORT INFORMATION
  Report Type: Spontaneous
  Country: US (occurrence: US)
  Receive Date: 20190227
  Receipt Date: 20190321
  Transmission Date: 20190418
  Serious: Yes (Hospitalization, Other)
  Sender: FDA-Public Use
  Company Number: US-JNJFOC-20190235969

PATIENT
  Age: 80 Year
  Sex: Male

DRUGS (8)
  1. AMLODIPINE [Concomitant]
     Active Substance: AMLODIPINE BESYLATE
  2. COUMADIN [Suspect]
     Active Substance: WARFARIN SODIUM
     Indication: PRODUCT USED FOR UNKNOWN INDICATION
     Route: 065
     Dates: end: 2019
  3. IMBRUVICA [Suspect]
     Active Substance: IBRUTINIB
     Indication: B-CELL SMALL LYMPHOCYTIC LYMPHOMA
     Route: 048
     Dates: start: 20160607, end: 20190129
  4. IMBRUVICA [Suspect]
     Active Substance: IBRUTINIB
     Indication: THROMBOCYTOPENIA
     Route: 048
     Dates: start: 20160607, end: 20190129
  5. VITAMIN D3 [Concomitant]
     Active Substance: CHOLECALCIFEROL
     Route: 048
  6. VITAMIN B12 [Concomitant]
     Active Substance: CYANOCOBALAMIN
     Route: 048
  7. PERFOROMIST [Concomitant]
     Active Substance: FORMOTEROL FUMARATE DIHYDRATE
  8. PROSCAR [Concomitant]
     Active Substance: FINASTERIDE
     Indication: BENIGN PROSTATIC HYPERPLASIA
     Route: 048

REACTIONS (14)
  - Haemoptysis [Recovered/Resolved]
  - Atrial fibrillation [Recovering/Resolving]
  - Bronchiectasis [Unknown]
  - Rhinovirus infection [Unknown]
  - Disease progression [Unknown]
  - Hepatic haemorrhage [Unknown]
  - Wheezing [Not Recovered/Not Resolved]
  - Product use in unapproved indication [Unknown]
  - Stomatitis [Unknown]
  - Enterovirus infection [Unknown]
  - Memory impairment [Unknown]
  - Off label use [Unknown]
  - Fatigue [Unknown]
  - Contusion [Unknown]

NARRATIVE: CASE EVENT DATE: 20160607
